FAERS Safety Report 21733200 (Version 1)
Quarter: 2022Q4

REPORT INFORMATION
  Report Type: Spontaneous
  Country: CZ (occurrence: CZ)
  Receive Date: 20221215
  Receipt Date: 20221215
  Transmission Date: 20230112
  Serious: Yes (Death)
  Sender: FDA-Public Use
  Company Number: CZ-002147023-NVSC2022CZ232451

PATIENT
  Sex: Female

DRUGS (1)
  1. GABAPENTIN [Suspect]
     Active Substance: GABAPENTIN
     Indication: Pain
     Dosage: UNK
     Route: 048

REACTIONS (7)
  - Death [Fatal]
  - Pathological fracture [Unknown]
  - Neuralgia [Unknown]
  - Anger [Unknown]
  - Abdominal pain [Unknown]
  - Depressed mood [Unknown]
  - Therapeutic response shortened [Unknown]

NARRATIVE: CASE EVENT DATE: 20220601
